FAERS Safety Report 5234731-0 (Version None)
Quarter: 2007Q1

REPORT INFORMATION
  Report Type: 
  Country: None (occurrence: None)
  Receive Date: 20070209
  Receipt Date: 20070202
  Transmission Date: 20070707
  Serious: Yes (Other)
  Sender: FDA-Public Use
  Company Number: US-PFIZER INC-2007002898

PATIENT
  Sex: Female
  Weight: 88.5 kg

DRUGS (5)
  1. CHANTIX [Suspect]
     Indication: SMOKING CESSATION THERAPY
     Route: 048
     Dates: start: 20061229, end: 20070101
  2. KLONOPIN [Concomitant]
  3. XANAX [Concomitant]
  4. ZOCOR [Concomitant]
  5. ZOLOFT [Concomitant]

REACTIONS (3)
  - ANOREXIA [None]
  - ANXIETY [None]
  - WEIGHT DECREASED [None]
